FAERS Safety Report 20089243 (Version 2)
Quarter: 2021Q4

REPORT INFORMATION
  Report Type: Spontaneous
  Country: NL (occurrence: NL)
  Receive Date: 20211119
  Receipt Date: 20211130
  Transmission Date: 20220303
  Serious: Yes (Other)
  Sender: FDA-Public Use
  Company Number: NL-LRB-00706672

PATIENT
  Sex: Male
  Weight: 83 kg

DRUGS (4)
  1. METOPROLOL [Suspect]
     Active Substance: METOPROLOL
     Indication: Arrhythmia
     Dosage: 100 MILLIGRAM, TWO TIMES A DAY(2 X PER DAG)
     Route: 065
     Dates: start: 20200119, end: 20211006
  2. SOTALOL [Suspect]
     Active Substance: SOTALOL
     Indication: Arrhythmia
     Dosage: 40 MILLIGRAM, FOUR TIMES/DAY(4  PER DAG)
     Route: 065
     Dates: start: 2019, end: 20200119
  3. CANDESARTAN [Concomitant]
     Active Substance: CANDESARTAN
     Indication: Product used for unknown indication
     Dosage: 4 MILLIGRAM, TWO TIMES A DAY(1 X PER DAG )
     Route: 065
  4. ELIQUIS [Concomitant]
     Active Substance: APIXABAN
     Indication: Product used for unknown indication
     Dosage: 5 MILLIGRAM, TWO TIMES A DAY(2 X PER DAG )
     Route: 065

REACTIONS (4)
  - Arrhythmia [Recovered/Resolved]
  - Heart rate increased [Recovered/Resolved]
  - N-terminal prohormone brain natriuretic peptide increased [Recovered/Resolved]
  - Therapeutic response unexpected [Unknown]
